FAERS Safety Report 16347895 (Version 2)
Quarter: 2020Q2

REPORT INFORMATION
  Report Type: Spontaneous
  Country: US (occurrence: US)
  Receive Date: 20190523
  Receipt Date: 20200409
  Transmission Date: 20200713
  Serious: Yes (Other)
  Sender: FDA-Public Use
  Company Number: US-GILEAD-2019-0408527

PATIENT
  Age: 59 Year
  Sex: Male

DRUGS (39)
  1. DULCOLAX (BISACODYL) [Concomitant]
     Active Substance: BISACODYL
  2. GEODON [Concomitant]
     Active Substance: ZIPRASIDONE HYDROCHLORIDE\ZIPRASIDONE MESYLATE
  3. MONTELUKAST [Concomitant]
     Active Substance: MONTELUKAST SODIUM
  4. ALBUTEROL HFA [Concomitant]
     Active Substance: ALBUTEROL SULFATE
  5. MOTRIN [Concomitant]
     Active Substance: IBUPROFEN
  6. ADVAIR HFA [Concomitant]
     Active Substance: FLUTICASONE PROPIONATE\SALMETEROL XINAFOATE
  7. KONSYL [PSYLLIUM HYDROPHILIC MUCILLOID] [Concomitant]
  8. NORVASC [Concomitant]
     Active Substance: AMLODIPINE BESYLATE
  9. REGLAN [Concomitant]
     Active Substance: METOCLOPRAMIDE HYDROCHLORIDE
  10. ELOCON [Concomitant]
     Active Substance: MOMETASONE FUROATE
  11. ATORVASTATIN [Concomitant]
     Active Substance: ATORVASTATIN
  12. PREDNISONE. [Concomitant]
     Active Substance: PREDNISONE
  13. AMOXICILLIN AND CLAVULANATE POTASSIUM [Concomitant]
     Active Substance: AMOXICILLIN\CLAVULANATE POTASSIUM
  14. DULOXETINE HYDROCHLORIDE. [Concomitant]
     Active Substance: DULOXETINE HYDROCHLORIDE
  15. CLONAZEPAM. [Concomitant]
     Active Substance: CLONAZEPAM
  16. DESCOVY [Concomitant]
     Active Substance: EMTRICITABINE\TENOFOVIR ALAFENAMIDE FUMARATE
     Dosage: 1 DOSAGE FORM (200-25 MG), QD
     Route: 048
  17. PRILOSEC [Concomitant]
     Active Substance: OMEPRAZOLE MAGNESIUM
  18. CELEXA [Concomitant]
     Active Substance: CITALOPRAM HYDROBROMIDE
  19. AZITHROMYCIN ANHYDROUS. [Concomitant]
     Active Substance: AZITHROMYCIN ANHYDROUS
  20. DOXEPIN HYDROCHLORIDE. [Concomitant]
     Active Substance: DOXEPIN HYDROCHLORIDE
  21. RESTASIS [Concomitant]
     Active Substance: CYCLOSPORINE
  22. PRAZOSIN. [Concomitant]
     Active Substance: PRAZOSIN
  23. NEURONTIN [Concomitant]
     Active Substance: GABAPENTIN
  24. EPIPEN [Concomitant]
     Active Substance: EPINEPHRINE
  25. VALTREX [Concomitant]
     Active Substance: VALACYCLOVIR HYDROCHLORIDE
  26. ZOFRAN [Concomitant]
     Active Substance: ONDANSETRON HYDROCHLORIDE
  27. MOMETASONE FUROATE. [Concomitant]
     Active Substance: MOMETASONE FUROATE
  28. INCRUSE ELLIPTA [Concomitant]
     Active Substance: UMECLIDINIUM BROMIDE
  29. ZYRTEC [Concomitant]
     Active Substance: CETIRIZINE HYDROCHLORIDE
  30. ISENTRESS [Concomitant]
     Active Substance: RALTEGRAVIR POTASSIUM
  31. PROVENTIL [Concomitant]
     Active Substance: ALBUTEROL
  32. LOTRIMIN AF [CLOTRIMAZOLE] [Concomitant]
  33. AMBIEN [Concomitant]
     Active Substance: ZOLPIDEM TARTRATE
  34. AKWA TEARS [BENZALKONIUM CHLORIDE;EDETIC ACID;POLYVINYL ALCOHOL] [Concomitant]
  35. NYSTATIN. [Concomitant]
     Active Substance: NYSTATIN
  36. BENZONATATE. [Concomitant]
     Active Substance: BENZONATATE
  37. EZETIMIBE. [Concomitant]
     Active Substance: EZETIMIBE
  38. TRUVADA [Suspect]
     Active Substance: EMTRICITABINE\TENOFOVIR DISOPROXIL FUMARATE
     Indication: HIV INFECTION
     Dosage: 200-300 MG
     Route: 048
     Dates: start: 201010, end: 201806
  39. CHANTIX [Concomitant]
     Active Substance: VARENICLINE TARTRATE

REACTIONS (9)
  - Osteoporosis [Not Recovered/Not Resolved]
  - Anhedonia [Unknown]
  - Anxiety [Unknown]
  - Tooth loss [Not Recovered/Not Resolved]
  - Bone loss [Unknown]
  - Economic problem [Unknown]
  - Emotional distress [Unknown]
  - Bone density abnormal [Unknown]
  - Pain [Unknown]

NARRATIVE: CASE EVENT DATE: 201802
